FAERS Safety Report 9897560 (Version 1)
Quarter: 2014Q1

REPORT INFORMATION
  Report Type: Report from Study
  Country: US (occurrence: US)
  Receive Date: 20140214
  Receipt Date: 20140214
  Transmission Date: 20141002
  Serious: Yes (Hospitalization)
  Sender: FDA-Public Use
  Company Number: US-ALEXION-A201400434

PATIENT
  Age: 56 Year
  Sex: Female

DRUGS (17)
  1. SOLIRIS [Suspect]
     Indication: HAEMOLYTIC URAEMIC SYNDROME
     Dosage: 1200
     Route: 042
     Dates: start: 20130618
  2. COUMADIN                           /00014802/ [Concomitant]
     Indication: ANTICOAGULANT THERAPY
     Dosage: 1 MG, QD
     Route: 065
     Dates: start: 20131108
  3. LOSARTAN                           /01121602/ [Concomitant]
     Dosage: 37.5 MG, QD
     Route: 065
     Dates: start: 20131108
  4. MAGNESIUM PLUS                     /01486801/ [Concomitant]
     Dosage: 133 MG, QD
     Route: 065
     Dates: start: 20131108
  5. MELATONIN [Concomitant]
     Dosage: 3MG 2 TABS QD
     Route: 065
     Dates: start: 20131108
  6. MEPRON [Concomitant]
     Dosage: 750 MG, QD
     Route: 065
     Dates: start: 20131108
  7. MYFORTIC [Concomitant]
     Indication: IMMUNOSUPPRESSANT DRUG THERAPY
     Dosage: 720 MG, BID
     Route: 065
     Dates: start: 20131108
  8. PERCOCET                           /00446701/ [Concomitant]
     Indication: PAIN
     Dosage: 5/325 MG PRN
     Route: 065
     Dates: start: 20131108
  9. PREDNISONE [Concomitant]
     Dosage: 8 MG, QD
     Route: 065
     Dates: start: 20131108
  10. PROTONIX [Concomitant]
     Dosage: 40 MG, BID
     Route: 065
     Dates: start: 20131108
  11. REMERON [Concomitant]
     Dosage: 15 MG, QD
     Route: 065
     Dates: start: 20131108
  12. SYNTHROID [Concomitant]
     Dosage: 50 MCG QD
     Route: 065
     Dates: start: 20131108
  13. VALCYTE [Concomitant]
     Dosage: 450 MG, QD
     Route: 065
     Dates: start: 20131108
  14. VFEND [Concomitant]
     Dosage: 200 MG, BID
     Route: 065
     Dates: start: 20131108
  15. VITAMIN B12                        /00056201/ [Concomitant]
     Dosage: 1/2 TAB QD
     Route: 065
     Dates: start: 20131108
  16. VITAMIN D3 [Concomitant]
     Dosage: 1000 UT, QD
     Route: 065
     Dates: start: 20131108
  17. VEETIDS [Concomitant]
     Dosage: 500 MG, BID
     Route: 065
     Dates: start: 20131111

REACTIONS (1)
  - H1N1 influenza [Unknown]
